FAERS Safety Report 6179537-3 (Version None)
Quarter: 2009Q2

REPORT INFORMATION
  Report Type: 
  Country: None (occurrence: None)
  Receive Date: 20090505
  Receipt Date: 20090427
  Transmission Date: 20091009
  Serious: Yes (Other)
  Sender: FDA-Public Use
  Company Number: ES-TEVA-192967ISR

PATIENT
  Age: 54 Year
  Sex: Male

DRUGS (9)
  1. RISPERIDONE [Suspect]
     Indication: PSYCHOTIC BEHAVIOUR
     Route: 048
  2. SIMVASTATIN [Interacting]
  3. CYCLOSPORINE [Interacting]
     Indication: PROPHYLAXIS AGAINST GRAFT VERSUS HOST DISEASE
     Dosage: 0.5 MG/12 HOURS
     Route: 042
  4. CYCLOSPORINE [Interacting]
     Dosage: 1.5 MG/12 HOURS
     Route: 042
  5. METHOTREXATE [Concomitant]
     Indication: PROPHYLAXIS AGAINST GRAFT VERSUS HOST DISEASE
  6. ATENOLOL [Concomitant]
  7. ENALAPRIL MALEATE [Concomitant]
  8. ACYCLOVIR [Concomitant]
  9. VORICONAZOLE [Concomitant]

REACTIONS (3)
  - DRUG INTERACTION [None]
  - RENAL FAILURE ACUTE [None]
  - RHABDOMYOLYSIS [None]
